FAERS Safety Report 20154266 (Version 2)
Quarter: 2021Q4

REPORT INFORMATION
  Report Type: Spontaneous
  Country: AU (occurrence: AU)
  Receive Date: 20211207
  Receipt Date: 20211217
  Transmission Date: 20220303
  Serious: Yes (Other)
  Sender: FDA-Public Use
  Company Number: AU-GE HEALTHCARE-2021CSU006071

PATIENT

DRUGS (5)
  1. OMNIPAQUE [Suspect]
     Active Substance: IOHEXOL
     Indication: Computerised tomogram abdomen
     Dosage: 100 ML, SINGLE
     Route: 042
     Dates: start: 20211126, end: 20211126
  2. OMNIPAQUE [Suspect]
     Active Substance: IOHEXOL
     Indication: Renal mass
  3. ADRENALIN [Suspect]
     Active Substance: EPINEPHRINE
     Indication: Palpitations
     Dosage: 0.5 ML
     Route: 030
     Dates: start: 20211126
  4. ADRENALIN [Suspect]
     Active Substance: EPINEPHRINE
     Indication: Tremor
  5. ADRENALIN [Suspect]
     Active Substance: EPINEPHRINE
     Indication: Feeling jittery

REACTIONS (8)
  - Sneezing [Recovered/Resolved]
  - Palpitations [Unknown]
  - Tremor [Unknown]
  - Feeling jittery [Unknown]
  - Pharyngeal swelling [Unknown]
  - Throat irritation [Recovered/Resolved]
  - Urticaria [Recovered/Resolved]
  - Pruritus [Recovered/Resolved]

NARRATIVE: CASE EVENT DATE: 20211126
